FAERS Safety Report 25990558 (Version 2)
Quarter: 2025Q4

REPORT INFORMATION
  Report Type: Spontaneous
  Country: US (occurrence: US)
  Receive Date: 20251103
  Receipt Date: 20251106
  Transmission Date: 20260118
  Serious: Yes (Life-Threatening, Hospitalization)
  Sender: PFIZER
  Company Number: US-PFIZER INC-PV202500128318

PATIENT
  Age: 63 Year
  Sex: Male
  Weight: 62 kg

DRUGS (1)
  1. LIDOCAINE HYDROCHLORIDE [Suspect]
     Active Substance: LIDOCAINE HYDROCHLORIDE
     Indication: Analgesic therapy
     Dosage: 3 ML/KG
     Route: 034

REACTIONS (4)
  - Accidental overdose [Recovered/Resolved]
  - Local anaesthetic systemic toxicity [Recovered/Resolved]
  - Toxic encephalopathy [Recovered/Resolved]
  - Off label use [Unknown]
